FAERS Safety Report 23454913 (Version 1)
Quarter: 2024Q1

REPORT INFORMATION
  Report Type: Spontaneous
  Country: US (occurrence: US)
  Receive Date: 20240130
  Receipt Date: 20240130
  Transmission Date: 20240410
  Serious: Yes (Hospitalization, Other)
  Sender: FDA-Public Use
  Company Number: US-STRIDES ARCOLAB LIMITED-2023SP018172

PATIENT

DRUGS (8)
  1. METHOTREXATE [Suspect]
     Active Substance: METHOTREXATE
     Indication: Acute promyelocytic leukaemia
     Dosage: UNK (PETHEMA LPA99 PROTOCOL: MAINTENANCE THERAPY)
     Route: 065
  2. TRETINOIN [Suspect]
     Active Substance: TRETINOIN
     Indication: Acute promyelocytic leukaemia
     Dosage: UNK (PETHEMA LPA99 PROTOCOL: INITIALLY ADMINISTERED AS INDUCTION THERAPY)
     Route: 065
  3. TRETINOIN [Suspect]
     Active Substance: TRETINOIN
     Dosage: UNK, (CONSOLIDATION THERAPY)
     Route: 065
  4. TRETINOIN [Suspect]
     Active Substance: TRETINOIN
     Dosage: UNK, (MAINTENANCE THERAPY)
     Route: 065
  5. IDARUBICIN [Suspect]
     Active Substance: IDARUBICIN
     Indication: Acute promyelocytic leukaemia
     Dosage: UNK (PETHEMA LPA99 PROTOCOL: INITIALLY ADMINISTERED AS INDUCTION THERAPY)
     Route: 065
  6. IDARUBICIN [Suspect]
     Active Substance: IDARUBICIN
     Dosage: UNK (CONSOLIDATION THERAPY)
     Route: 065
  7. MITOXANTRONE [Suspect]
     Active Substance: MITOXANTRONE HYDROCHLORIDE
     Indication: Acute promyelocytic leukaemia
     Dosage: UNK (PETHEMA LPA99 PROTOCOL: CONSOLIDATION THERAPY)
     Route: 065
  8. MERCAPTOPURINE [Suspect]
     Active Substance: MERCAPTOPURINE
     Indication: Acute promyelocytic leukaemia
     Dosage: UNK (PETHEMA LPA99 PROTOCOL: MAINTENANCE THERAPY)
     Route: 065

REACTIONS (2)
  - Febrile neutropenia [Unknown]
  - Pancytopenia [Unknown]
